FAERS Safety Report 18518383 (Version 1)
Quarter: 2020Q4

REPORT INFORMATION
  Report Type: Other
  Country: IT (occurrence: IT)
  Receive Date: 20201118
  Receipt Date: 20201118
  Transmission Date: 20210114
  Serious: Yes (Other)
  Sender: FDA-Public Use
  Company Number: IT-ROCHE-2713267

PATIENT

DRUGS (2)
  1. METHYLPREDNISOLONE. [Suspect]
     Active Substance: METHYLPREDNISOLONE
     Indication: COVID-19
     Route: 042
  2. TOCILIZUMAB. [Suspect]
     Active Substance: TOCILIZUMAB
     Indication: COVID-19
     Dosage: SINGLE ADMINISTRATION OR REPEATED ONCE.
     Route: 042

REACTIONS (11)
  - Staphylococcal infection [Unknown]
  - Pseudomonas infection [Unknown]
  - Alpha haemolytic streptococcal infection [Unknown]
  - Enterobacter infection [Unknown]
  - Escherichia infection [Unknown]
  - Candida infection [Unknown]
  - Intentional product use issue [Unknown]
  - Enterococcal infection [Unknown]
  - Proteus infection [Unknown]
  - Bacterial infection [Unknown]
  - Off label use [Unknown]
